FAERS Safety Report 11251599 (Version 1)
Quarter: 2015Q3

REPORT INFORMATION
  Report Type: Spontaneous
  Country: US (occurrence: US)
  Receive Date: 20150708
  Receipt Date: 20150708
  Transmission Date: 20151125
  Serious: Yes (Hospitalization)
  Sender: FDA-Public Use
  Company Number: US-ELI_LILLY_AND_COMPANY-US201110008036

PATIENT
  Age: 65 Year
  Sex: Male
  Weight: 105 kg

DRUGS (4)
  1. FOLIC ACID. [Concomitant]
     Active Substance: FOLIC ACID
     Dosage: 1 MG, QD
     Dates: start: 20110825
  2. CORTICOSTEROIDS [Concomitant]
     Active Substance: CORTICOSTEROID NOS
     Dosage: 10MG EVERY FOUR WEEKS
     Dates: start: 20080825
  3. ALIMTA [Suspect]
     Active Substance: PEMETREXED DISODIUM
     Indication: NON-SMALL CELL LUNG CANCER
     Dosage: 995 MG, UNK
     Route: 042
     Dates: start: 20080825, end: 20110928
  4. VITAMIN B12 [Concomitant]
     Active Substance: CYANOCOBALAMIN
     Dosage: 1000 MG, EVERY FOUR WEEKS
     Dates: start: 20080825

REACTIONS (2)
  - Pneumonia [Recovered/Resolved]
  - Neutropenia [Recovered/Resolved]
